FAERS Safety Report 9186200 (Version 5)
Quarter: 2014Q4

REPORT INFORMATION
  Report Type: Spontaneous
  Country: US (occurrence: US)
  Receive Date: 20130325
  Receipt Date: 20141219
  Transmission Date: 20150529
  Serious: Yes (Death, Hospitalization, Other)
  Sender: FDA-Public Use
  Company Number: US-GLAXOSMITHKLINE-A1016931A

PATIENT
  Age: 50 Year
  Sex: Female

DRUGS (4)
  1. FLOLAN [Suspect]
     Active Substance: EPOPROSTENOL SODIUM
     Dosage: 92NG/KG.MIN
     Dates: start: 20130110
  2. FLOLAN [Suspect]
     Active Substance: EPOPROSTENOL SODIUM
     Dosage: UNK
     Dates: start: 20130109
  3. FLOLAN [Suspect]
     Active Substance: EPOPROSTENOL SODIUM
     Dosage: UNK
     Dates: start: 20130109
  4. FLOLAN [Suspect]
     Active Substance: EPOPROSTENOL SODIUM
     Indication: COR PULMONALE CHRONIC
     Dosage: 8 NG/KG/MINCONCENTRATION: 15,000 NG/MLVIAL STRENGTH: 1.5 MG
     Route: 042
     Dates: start: 20130109

REACTIONS (7)
  - Catheter site pruritus [Unknown]
  - Device infusion issue [Unknown]
  - Diarrhoea [Unknown]
  - Fluid overload [Unknown]
  - Hypertension [Unknown]
  - Hypotension [Unknown]
  - Death [Fatal]

NARRATIVE: CASE EVENT DATE: 20130313
